FAERS Safety Report 13965176 (Version 1)
Quarter: 2017Q3

REPORT INFORMATION
  Report Type: Report from Study
  Country: US (occurrence: US)
  Receive Date: 20170913
  Receipt Date: 20170913
  Transmission Date: 20171128
  Serious: Yes (Hospitalization)
  Sender: FDA-Public Use
  Company Number: US-GILEAD-2017-0292995

PATIENT
  Age: 65 Year
  Sex: Male

DRUGS (1)
  1. RANOLAZINE. [Suspect]
     Active Substance: RANOLAZINE
     Indication: PRODUCT USED FOR UNKNOWN INDICATION
     Dosage: 500 MG, UNK
     Route: 048
     Dates: start: 20160806, end: 201703

REACTIONS (3)
  - Catheterisation cardiac [Recovered/Resolved]
  - Chest pain [Unknown]
  - Intentional product use issue [Recovered/Resolved]

NARRATIVE: CASE EVENT DATE: 201703
